FAERS Safety Report 5192842-2 (Version None)
Quarter: 2006Q4

REPORT INFORMATION
  Report Type: 
  Country: None (occurrence: None)
  Receive Date: 20061228
  Receipt Date: 20051215
  Transmission Date: 20070319
  Serious: No
  Sender: FDA-Public Use
  Company Number: US-GLAXOSMITHKLINE-A0585962A

PATIENT
  Age: 45 Year
  Sex: Female

DRUGS (5)
  1. FLONASE [Suspect]
     Route: 045
     Dates: start: 20000101, end: 20051214
  2. CLARINEX [Concomitant]
  3. ZYRTEC [Concomitant]
  4. NEXIUM [Concomitant]
  5. CELEXA [Concomitant]

REACTIONS (2)
  - EPISTAXIS [None]
  - NASAL DRYNESS [None]
